FAERS Safety Report 14315203 (Version 1)
Quarter: 2017Q4

REPORT INFORMATION
  Report Type: Spontaneous
  Country: None (occurrence: US)
  Receive Date: 20171221
  Receipt Date: 20171221
  Transmission Date: 20180321
  Serious: Yes (Other)
  Sender: FDA-Public Use
  Company Number: US-JUBILANT HOLLISTERSTIER LLC-2037593

PATIENT
  Age: 16 Year
  Sex: Female

DRUGS (2)
  1. MOLDS, RUSTS AND SMUTS, HELMINTHOSPORIUM INTERSEMINATUM [Suspect]
     Active Substance: DENDRYPHIELLA VINOSA
     Indication: OFF LABEL USE
  2. CANDIDA ALBICANS. [Suspect]
     Active Substance: CANDIDA ALBICANS
     Dates: start: 20170331

REACTIONS (3)
  - Swelling [Recovered/Resolved]
  - Back pain [Recovered/Resolved]
  - Pyrexia [Recovered/Resolved]
